FAERS Safety Report 8975068 (Version 1)
Quarter: 2012Q4

REPORT INFORMATION
  Report Type: 
  Country: DE (occurrence: DE)
  Receive Date: 20121219
  Receipt Date: 20121219
  Transmission Date: 20130627
  Serious: Yes (Other)
  Sender: FDA-Public Use
  Company Number: DE-BAXTER-2012BAX027982

PATIENT

DRUGS (7)
  1. ENDOXAN 1G [Suspect]
     Indication: B-CELL LYMPHOMA
     Dosage: DAY 1
  2. ETOPOSIDE [Suspect]
     Indication: B-CELL LYMPHOMA
     Dosage: DAYS 1-3
  3. DOXORUBICIN [Suspect]
     Indication: B-CELL LYMPHOMA
     Dosage: DAY 1
  4. VINCRISTINE [Suspect]
     Indication: B-CELL LYMPHOMA
     Dosage: DAY 1
  5. PREDNISONE [Suspect]
     Indication: B-CELL LYMPHOMA
     Dosage: DAYS 1-5
  6. RITUXIMAB [Suspect]
     Indication: B-CELL LYMPHOMA
     Dosage: DAYS 0 OF CYCLES 1-4, 6 AND 8
  7. GRANULOCYTE COLONY-STIMULATING FACTOR [Concomitant]
     Indication: DRUG USE FOR UNKNOWN INDICATION
     Dosage: 2X5 MCG/KG

REACTIONS (1)
  - Myelodysplastic syndrome [Unknown]
